FAERS Safety Report 9212769 (Version 1)
Quarter: 2013Q1

REPORT INFORMATION
  Report Type: Spontaneous
  Country: US (occurrence: None)
  Receive Date: 20120820
  Receipt Date: 20120820
  Transmission Date: 20140127
  Serious: No
  Sender: FDA-Public Use
  Company Number: 1000037115

PATIENT
  Age: 59 Year
  Sex: Female

DRUGS (4)
  1. VIIBRYD (VILAZODONE) (10 MILLIGRAM, TABLET) [Suspect]
     Indication: DEPRESSION
     Dosage: 10 MG 1 IN 1 D
     Dates: start: 20120630, end: 20120707
  2. VIIBRYD (VILAZODONE) (10 MILLIGRAM, TABLET) [Suspect]
     Indication: ANXIETY
     Dosage: 10 MG 1 IN 1 D
     Dates: start: 20120630, end: 20120707
  3. VIIBRYD (VILAZODONE) (20 MILLIGRAMS, TABLETS) [Suspect]
     Indication: DEPRESSION
     Dosage: 20 MG 1 IN 1 D
     Dates: start: 20120708, end: 20120710
  4. VIIBRYD (VILAZODONE) (20 MILLIGRAMS, TABLETS) [Suspect]
     Indication: ANXIETY
     Dosage: 20 MG 1 IN 1 D
     Dates: start: 20120708, end: 20120710

REACTIONS (6)
  - Anxiety [None]
  - Chest pain [None]
  - Nausea [None]
  - Influenza [None]
  - Palpitations [None]
  - Restless legs syndrome [None]
